FAERS Safety Report 19254988 (Version 1)
Quarter: 2021Q2

REPORT INFORMATION
  Report Type: Spontaneous
  Country: SI (occurrence: SI)
  Receive Date: 20210513
  Receipt Date: 20210513
  Transmission Date: 20210717
  Serious: Yes (Other)
  Sender: FDA-Public Use
  Company Number: SI-PFIZER INC-2021497237

PATIENT
  Sex: Male

DRUGS (43)
  1. ATORVASTATIN CALCIUM. [Suspect]
     Active Substance: ATORVASTATIN CALCIUM
     Indication: HYPERCHOLESTEROLAEMIA
     Dosage: UNK
     Route: 065
  2. PRENESSA [Concomitant]
     Active Substance: PERINDOPRIL
     Dosage: 4 MG IN THE MORNING AND 2 MG IN THE EVENING
     Route: 065
     Dates: start: 201104
  3. LACIPIL [Concomitant]
     Active Substance: LACIDIPINE
     Dosage: 4 MG (IN THE EVENING)
     Route: 065
     Dates: start: 201104
  4. LACIPIL [Concomitant]
     Active Substance: LACIDIPINE
     Dosage: 6 MG
     Route: 065
     Dates: start: 201912
  5. LACIPIL [Concomitant]
     Active Substance: LACIDIPINE
     Dosage: 6 MG
     Route: 065
     Dates: start: 202006
  6. REPATHA [Concomitant]
     Active Substance: EVOLOCUMAB
     Dosage: 140 MG, Q2W (EVERY 14 DAYS)
     Route: 058
  7. CATALIP [Concomitant]
     Active Substance: FENOFIBRATE
     Dosage: 250 MG
     Route: 065
     Dates: start: 201912
  8. PLAVIX [Concomitant]
     Active Substance: CLOPIDOGREL BISULFATE
     Dosage: 75 MG (HALF A YEAR)
     Route: 065
     Dates: start: 201912
  9. RANEXA [Concomitant]
     Active Substance: RANOLAZINE
     Dosage: FREQ:12 H;375 MG, Q12H
     Route: 065
     Dates: start: 201606
  10. CATALIP [Concomitant]
     Active Substance: FENOFIBRATE
     Dosage: 250 MG (IN THE EVENING)
     Route: 065
     Dates: start: 201912
  11. PRENESSA [Concomitant]
     Active Substance: PERINDOPRIL
     Dosage: 4 MG (2X1)
     Route: 065
     Dates: start: 201604
  12. PRENESSA [Concomitant]
     Active Substance: PERINDOPRIL
     Dosage: 8 MG
     Route: 065
     Dates: start: 201912
  13. PRENESSA [Concomitant]
     Active Substance: PERINDOPRIL
     Dosage: 8 MG
     Route: 065
     Dates: start: 202006
  14. PLAVIX [Concomitant]
     Active Substance: CLOPIDOGREL BISULFATE
     Dosage: 75 MG
     Route: 065
     Dates: start: 201111
  15. ASPIRIN [ACETYLSALICYLIC ACID] [Concomitant]
     Active Substance: ASPIRIN
     Route: 065
  16. CRESTOR [Suspect]
     Active Substance: ROSUVASTATIN CALCIUM
     Dosage: IN THE EVENING
     Route: 065
  17. EFIENT [Concomitant]
     Active Substance: PRASUGREL HYDROCHLORIDE
     Dosage: 10 MG (ONE YEAR)
     Route: 065
     Dates: start: 201606, end: 201704
  18. LACIPIL [Concomitant]
     Active Substance: LACIDIPINE
     Dosage: 4 MG (IN THE EVENING)
     Route: 065
     Dates: start: 201111
  19. LACIPIL [Concomitant]
     Active Substance: LACIDIPINE
     Dosage: 4 MG (IN THE EVENING)
     Route: 065
     Dates: start: 201604
  20. REPATHA [Concomitant]
     Active Substance: EVOLOCUMAB
     Dosage: 140 MG, Q2W (1X EVERY 14 DAYS)
     Route: 065
     Dates: start: 202006, end: 202010
  21. PRENESSA [Concomitant]
     Active Substance: PERINDOPRIL
     Dosage: 4 MG (IN THE MORNING)
     Route: 065
     Dates: start: 201111
  22. SORTIS [Concomitant]
     Active Substance: ATORVASTATIN
     Dosage: 20 MG (IN THE EVENNING)
     Route: 065
     Dates: start: 201606
  23. LACIPIL [Concomitant]
     Active Substance: LACIDIPINE
     Dosage: 6 MG (IN THE EVENING)
     Route: 065
     Dates: start: 201912
  24. PLAVIX [Concomitant]
     Active Substance: CLOPIDOGREL BISULFATE
     Dosage: 75 MG
     Route: 065
     Dates: start: 202006
  25. COUPET [Suspect]
     Active Substance: ROSUVASTATIN CALCIUM
     Indication: HYPERCHOLESTEROLAEMIA
     Dosage: 10 MG (IN THE EVENING)
     Route: 065
     Dates: start: 201104, end: 201106
  26. PANTOPRAZOLE [Concomitant]
     Active Substance: PANTOPRAZOLE
     Dosage: 20 MG (IN THE MORNING)
     Route: 065
     Dates: start: 201606
  27. NOLPAZA [Concomitant]
     Active Substance: PANTOPRAZOLE SODIUM
     Dosage: 20 MG (IN THE MORNING)
     Route: 065
     Dates: start: 201912
  28. ULTOP [OMEPRAZOLE] [Concomitant]
     Dosage: IN THE MORNING
     Route: 065
  29. EZETIMIBE. [Suspect]
     Active Substance: EZETIMIBE
     Indication: HYPERCHOLESTEROLAEMIA
     Route: 065
  30. EFIENT [Concomitant]
     Active Substance: PRASUGREL HYDROCHLORIDE
     Dosage: 10 MG (ONE YEAR)
     Route: 065
     Dates: start: 201604
  31. PRENESSA [Concomitant]
     Active Substance: PERINDOPRIL
     Dosage: 8 MG (IN THE MORNING)
     Route: 065
     Dates: start: 201912
  32. PRENESSA [Concomitant]
     Active Substance: PERINDOPRIL
     Dosage: 8 MG
     Route: 065
  33. LACIPIL [Concomitant]
     Active Substance: LACIDIPINE
     Dosage: 6 MG (IN THE EVENING)
     Route: 065
     Dates: start: 201606
  34. LACIPIL [Concomitant]
     Active Substance: LACIDIPINE
     Dosage: 6 MG (IN THE EVENING)
     Route: 065
  35. PLAVIX [Concomitant]
     Active Substance: CLOPIDOGREL BISULFATE
     Dosage: UNK, ONE YEAR
     Route: 065
  36. CATALIP [Concomitant]
     Active Substance: FENOFIBRATE
     Dosage: UNK
     Route: 065
     Dates: start: 201606
  37. PANTOPRAZOLE [Concomitant]
     Active Substance: PANTOPRAZOLE
     Dosage: 20 MG (IN THE MORNING)
     Route: 065
     Dates: start: 201604
  38. PRENESSA [Concomitant]
     Active Substance: PERINDOPRIL
     Dosage: 4 MG (2X1)
     Route: 065
     Dates: start: 201606
  39. SORTIS [Concomitant]
     Active Substance: ATORVASTATIN
     Dosage: 20 MG (IN THE EVENNING)
     Route: 065
     Dates: start: 201604
  40. LACIPIL [Concomitant]
     Active Substance: LACIDIPINE
     Dosage: 2 MG (IN THE MORNING)
     Route: 065
     Dates: start: 201606
  41. LACIPIL [Concomitant]
     Active Substance: LACIDIPINE
     Dosage: 4 MG (IN THE EVENING)
     Route: 065
     Dates: start: 201606
  42. RANEXA [Concomitant]
     Active Substance: RANOLAZINE
     Dosage: FREQ:12 H;500 MG, Q12H
     Route: 065
     Dates: start: 201606
  43. PRENEWEL [Concomitant]
     Active Substance: INDAPAMIDE\PERINDOPRIL ERBUMINE
     Dosage: UNK
     Route: 065
     Dates: start: 201606

REACTIONS (3)
  - Drug intolerance [Unknown]
  - Myalgia [Recovering/Resolving]
  - Bradycardia [Unknown]
